FAERS Safety Report 8223775-2 (Version None)
Quarter: 2012Q1

REPORT INFORMATION
  Report Type: 
  Country: None (occurrence: None)
  Receive Date: 20120321
  Receipt Date: 20120313
  Transmission Date: 20120608
  Serious: Yes (Other)
  Sender: FDA-Public Use
  Company Number: US-US-EMD SERONO, INC.-7019308

PATIENT
  Sex: Female

DRUGS (6)
  1. REBIF [Suspect]
     Route: 058
  2. REBIF [Suspect]
     Route: 058
     Dates: start: 20100501
  3. REBIF [Suspect]
     Indication: MULTIPLE SCLEROSIS
     Route: 058
     Dates: start: 20100319
  4. REBIF [Suspect]
     Route: 058
     Dates: start: 20120301
  5. REBIF [Suspect]
     Route: 058
  6. REBIF [Suspect]
     Route: 058
     Dates: start: 20100701

REACTIONS (3)
  - DIPLOPIA [None]
  - INFECTIOUS MONONUCLEOSIS [None]
  - MIGRAINE [None]
